FAERS Safety Report 18685500 (Version 1)
Quarter: 2020Q4

REPORT INFORMATION
  Report Type: Spontaneous
  Country: US (occurrence: US)
  Receive Date: 20201230
  Receipt Date: 20201230
  Transmission Date: 20210114
  Serious: No
  Sender: FDA-Public Use
  Company Number: US-TEVA-2020-US-1864252

PATIENT
  Sex: Male

DRUGS (3)
  1. NEFAZODONE TEVA [Suspect]
     Active Substance: NEFAZODONE
     Dosage: 200 MILLIGRAM DAILY;
     Route: 065
  2. NEFAZODONE TEVA [Suspect]
     Active Substance: NEFAZODONE
     Indication: DEPRESSION
     Dosage: DOSE: 1 TABLET OF 100 MG AND ANOTHER HALF TABLET OF 100 MG
     Route: 065
  3. NEFAZODONE TEVA [Suspect]
     Active Substance: NEFAZODONE
     Indication: ANXIETY
     Dosage: 200 MILLIGRAM DAILY;
     Route: 065

REACTIONS (10)
  - Sleep disorder [Recovered/Resolved]
  - Pupillary disorder [Recovered/Resolved]
  - Gait disturbance [Recovered/Resolved]
  - Joint stiffness [Recovered/Resolved]
  - Product availability issue [Unknown]
  - Hypoaesthesia [Recovered/Resolved]
  - Musculoskeletal stiffness [Recovered/Resolved]
  - Abnormal dreams [Recovered/Resolved]
  - Withdrawal syndrome [Recovered/Resolved]
  - Drug ineffective [Unknown]
